FAERS Safety Report 4589763-2 (Version None)
Quarter: 2005Q1

REPORT INFORMATION
  Report Type: 
  Country: None (occurrence: None)
  Receive Date: 20050217
  Receipt Date: 20050208
  Transmission Date: 20050727
  Serious: Yes (Other)
  Sender: FDA-Public Use
  Company Number: 2005027638

PATIENT
  Age: 76 Year
  Sex: Male

DRUGS (5)
  1. LIPITOR [Suspect]
     Indication: ILL-DEFINED DISORDER
     Dosage: (20 MG), ORAL
     Route: 048
  2. PERINDOPRIL (PERINDOPRIL) [Concomitant]
  3. TELMISARTAN (TELMISARTAN) [Concomitant]
  4. FUROSEMIDE [Concomitant]
  5. CLOPIDOGREL BISULFATE [Concomitant]

REACTIONS (5)
  - DYSPHAGIA [None]
  - FATIGUE [None]
  - HEADACHE [None]
  - MYALGIA [None]
  - TONGUE ULCERATION [None]
